FAERS Safety Report 7989783-1 (Version None)
Quarter: 2011Q4

REPORT INFORMATION
  Report Type: 
  Country: None (occurrence: None)
  Receive Date: 20111219
  Receipt Date: 20110519
  Transmission Date: 20120403
  Serious: No
  Sender: FDA-Public Use
  Company Number: US-ASTRAZENECA-2011SE23294

PATIENT
  Age: 79 Year
  Sex: Male
  Weight: 75.3 kg

DRUGS (2)
  1. COQ-10 [Concomitant]
     Indication: SUPPLEMENTATION THERAPY
  2. CRESTOR [Suspect]
     Indication: HYPERCHOLESTEROLAEMIA
     Route: 048
     Dates: start: 20100901, end: 20110422

REACTIONS (4)
  - PRURITUS [None]
  - RASH MACULAR [None]
  - BREATH ODOUR [None]
  - MEMORY IMPAIRMENT [None]
